FAERS Safety Report 6699366-1 (Version None)
Quarter: 2010Q2

REPORT INFORMATION
  Report Type: 
  Country: None (occurrence: None)
  Receive Date: 20100427
  Receipt Date: 20100416
  Transmission Date: 20101027
  Serious: Yes (Hospitalization, Other)
  Sender: FDA-Public Use
  Company Number: US-BAXTER-2010BH008671

PATIENT
  Age: 73 Year
  Sex: Female

DRUGS (2)
  1. DIANEAL [Suspect]
     Indication: PERITONEAL DIALYSIS
     Route: 033
  2. GLACIAL ACETIC ACID [Suspect]
     Indication: INFUSION SITE INFECTION
     Route: 061
     Dates: start: 20100302, end: 20100302

REACTIONS (4)
  - BURNS SECOND DEGREE [None]
  - BURNS THIRD DEGREE [None]
  - DEVICE RELATED INFECTION [None]
  - DRUG DISPENSING ERROR [None]
